FAERS Safety Report 7056331-2 (Version None)
Quarter: 2010Q4

REPORT INFORMATION
  Report Type: 
  Country: None (occurrence: None)
  Receive Date: 20101021
  Receipt Date: 20101007
  Transmission Date: 20110411
  Serious: Yes (Other)
  Sender: FDA-Public Use
  Company Number: JP-ELI_LILLY_AND_COMPANY-JP201009004280

PATIENT
  Age: 75 Year
  Sex: Female

DRUGS (5)
  1. CYMBALTA [Suspect]
     Indication: DEPRESSION
     Dosage: 20 MG, DAILY (1/D)
     Route: 048
     Dates: start: 20100801, end: 20100801
  2. CYMBALTA [Suspect]
     Dosage: 40 MG, DAILY (1/D)
     Route: 048
     Dates: start: 20100801, end: 20100901
  3. SEDIEL [Concomitant]
  4. MEILAX [Concomitant]
  5. PREDONINE [Concomitant]
     Dosage: UNK, UNK
     Route: 048

REACTIONS (1)
  - PLATELET COUNT DECREASED [None]
